FAERS Safety Report 19184685 (Version 8)
Quarter: 2022Q2

REPORT INFORMATION
  Report Type: Spontaneous
  Country: BR (occurrence: BR)
  Receive Date: 20210427
  Receipt Date: 20220628
  Transmission Date: 20220721
  Serious: Yes (Other)
  Sender: FDA-Public Use
  Company Number: BR-GLAXOSMITHKLINE-BR2021AMR090565

PATIENT

DRUGS (7)
  1. NUCALA [Suspect]
     Active Substance: MEPOLIZUMAB
     Indication: Asthma
     Dosage: 100 MG
     Dates: start: 20210115
  2. SERETIDE [Suspect]
     Active Substance: FLUTICASONE PROPIONATE\SALMETEROL XINAFOATE
     Indication: Product used for unknown indication
     Dosage: UNK, BID, IN THE PERIOD OF MORNING AND AT NIGHT
  3. ALBUTEROL [Suspect]
     Active Substance: ALBUTEROL
     Indication: Product used for unknown indication
     Dosage: UNK, 6 TO 7 TIMES A DAY
     Route: 055
     Dates: start: 20210503
  4. ALBUTEROL [Suspect]
     Active Substance: ALBUTEROL
     Dosage: UNK, 6 TO 7 TIMES A DAY
     Route: 055
     Dates: start: 20210504
  5. ALBUTEROL [Suspect]
     Active Substance: ALBUTEROL
     Dosage: UNK, 6 TO 7 TIMES A DAY
     Route: 055
     Dates: start: 20210505
  6. ALBUTEROL [Suspect]
     Active Substance: ALBUTEROL
     Dosage: UNK, BID
     Route: 055
     Dates: start: 20210506
  7. ALBUTEROL [Suspect]
     Active Substance: ALBUTEROL
     Dosage: UNK UNK, BID
     Route: 055
     Dates: start: 20210507

REACTIONS (11)
  - Asthmatic crisis [Not Recovered/Not Resolved]
  - Dyspnoea [Not Recovered/Not Resolved]
  - Asthma [Unknown]
  - Hypotension [Unknown]
  - Blood glucose decreased [Unknown]
  - Throat irritation [Unknown]
  - Rhinorrhoea [Unknown]
  - Product dose omission issue [Not Recovered/Not Resolved]
  - Inappropriate schedule of product administration [Unknown]
  - Product use issue [Unknown]
  - Underdose [Unknown]

NARRATIVE: CASE EVENT DATE: 20210716
